FAERS Safety Report 24253665 (Version 1)
Quarter: 2024Q3

REPORT INFORMATION
  Report Type: Spontaneous
  Country: US (occurrence: US)
  Receive Date: 20240827
  Receipt Date: 20240827
  Transmission Date: 20241017
  Serious: No
  Sender: BAYER
  Company Number: US-BAYER-2024A121200

PATIENT
  Age: 74 Year
  Sex: Male

DRUGS (2)
  1. MIRALAX [Suspect]
     Active Substance: POLYETHYLENE GLYCOL 3350
     Indication: Gastrointestinal disorder
     Dosage: 1 TEASPOON
     Route: 048
     Dates: start: 20240821, end: 20240821
  2. METHIMAZOLE [Concomitant]
     Active Substance: METHIMAZOLE
     Indication: Gastrointestinal disorder
     Dosage: TEASPOON
     Route: 048
     Dates: start: 20240821, end: 20240821

REACTIONS (2)
  - Incorrect dose administered [Unknown]
  - Expired product administered [None]

NARRATIVE: CASE EVENT DATE: 20240821
